FAERS Safety Report 22525864 (Version 1)
Quarter: 2023Q2

REPORT INFORMATION
  Report Type: Spontaneous
  Country: US (occurrence: US)
  Receive Date: 20230606
  Receipt Date: 20230606
  Transmission Date: 20230721
  Serious: No
  Sender: FDA-Public Use
  Company Number: US-BRISTOL-MYERS SQUIBB COMPANY-2023-078165

PATIENT
  Age: 89 Year
  Sex: Female
  Weight: 63 kg

DRUGS (1)
  1. ELIQUIS [Suspect]
     Active Substance: APIXABAN
     Indication: Cerebrovascular accident prophylaxis
     Dosage: FREQ : 1 HALF TWICE A DAY
     Route: 048

REACTIONS (1)
  - Wrong technique in product usage process [Unknown]
